FAERS Safety Report 16608589 (Version 2)
Quarter: 2019Q3

REPORT INFORMATION
  Report Type: Spontaneous
  Country: DE (occurrence: DE)
  Receive Date: 20190722
  Receipt Date: 20190808
  Transmission Date: 20191004
  Serious: Yes (Other)
  Sender: FDA-Public Use
  Company Number: DE-BAYER-2019-132269

PATIENT
  Age: 26 Year
  Sex: Female

DRUGS (4)
  1. SYMBICORT [Concomitant]
     Active Substance: BUDESONIDE\FORMOTEROL FUMARATE DIHYDRATE
  2. PENTASA [Concomitant]
     Active Substance: MESALAMINE
  3. KYLEENA [Suspect]
     Active Substance: LEVONORGESTREL
     Indication: CONTRACEPTION
     Dosage: 17.5 MCG/24HR, CONT
     Route: 015
     Dates: start: 20190503
  4. CORTISON [Concomitant]
     Active Substance: CORTISONE ACETATE

REACTIONS (1)
  - Crohn^s disease [None]

NARRATIVE: CASE EVENT DATE: 201907
